FAERS Safety Report 5479080-0 (Version None)
Quarter: 2007Q4

REPORT INFORMATION
  Report Type: 
  Country: None (occurrence: None)
  Receive Date: 20071006
  Receipt Date: 20070924
  Transmission Date: 20080405
  Serious: Yes (Other)
  Sender: FDA-Public Use
  Company Number: US-PFIZER INC-2007081611

PATIENT
  Sex: Female
  Weight: 58.1 kg

DRUGS (8)
  1. CHANTIX [Suspect]
     Indication: EX-SMOKER
     Dates: start: 20070810, end: 20070905
  2. NEXIUM [Concomitant]
  3. LYRICA [Concomitant]
  4. BACLOFEN [Concomitant]
  5. VALTREX [Concomitant]
  6. LIPITOR [Concomitant]
  7. LEXAPRO [Concomitant]
  8. SONATA [Concomitant]

REACTIONS (5)
  - BLISTER [None]
  - HEADACHE [None]
  - HYPERSENSITIVITY [None]
  - INFLUENZA LIKE ILLNESS [None]
  - LYMPHADENOPATHY [None]
